FAERS Safety Report 5307075-6 (Version None)
Quarter: 2007Q2

REPORT INFORMATION
  Report Type: 
  Country: None (occurrence: None)
  Receive Date: 20070420
  Receipt Date: 20070420
  Transmission Date: 20071010
  Serious: Yes (Death)
  Sender: FDA-Public Use
  Company Number: None

PATIENT
  Sex: Male
  Weight: 122 kg

DRUGS (1)
  1. HALOPERIDOL LACTATE [Suspect]
     Indication: PSYCHOTIC DISORDER
     Dosage: 5 MG  STAT X 1   IM
     Route: 030
     Dates: start: 20060707, end: 20060707

REACTIONS (1)
  - CARDIO-RESPIRATORY ARREST [None]
